FAERS Safety Report 6719550-8 (Version None)
Quarter: 2010Q2

REPORT INFORMATION
  Report Type: 
  Country: None (occurrence: None)
  Receive Date: 20100510
  Receipt Date: 20100510
  Transmission Date: 20101027
  Serious: Yes (Hospitalization)
  Sender: FDA-Public Use
  Company Number: None

PATIENT
  Age: 61 Year
  Sex: Male
  Weight: 136.0791 kg

DRUGS (4)
  1. CIPROFLOXACIN HYDROCHLORIDE [Suspect]
     Indication: INFECTION PROPHYLAXIS
     Dosage: 500MG 2 TIMES A DAY PO
     Route: 048
     Dates: start: 20100424, end: 20100427
  2. CIPROFLOXACIN HYDROCHLORIDE [Suspect]
     Indication: POST PROCEDURAL INFECTION
     Dosage: 500MG 2 TIMES A DAY PO
     Route: 048
     Dates: start: 20100424, end: 20100427
  3. CIPROFLOXACIN HYDROCHLORIDE [Suspect]
     Indication: INFECTION PROPHYLAXIS
     Dosage: 500MG 2 TIMES A DAY PO
     Route: 048
     Dates: start: 20100429, end: 20100502
  4. CIPROFLOXACIN HYDROCHLORIDE [Suspect]
     Indication: POST PROCEDURAL INFECTION
     Dosage: 500MG 2 TIMES A DAY PO
     Route: 048
     Dates: start: 20100429, end: 20100502

REACTIONS (5)
  - ASTHENIA [None]
  - DIZZINESS [None]
  - NIGHTMARE [None]
  - PAIN IN EXTREMITY [None]
  - PYREXIA [None]
